FAERS Safety Report 9121493 (Version 6)
Quarter: 2013Q3

REPORT INFORMATION
  Report Type: Spontaneous
  Country: US (occurrence: US)
  Receive Date: 20130227
  Receipt Date: 20130814
  Transmission Date: 20140515
  Serious: No
  Sender: FDA-Public Use
  Company Number: US-009507513-1302USA011884

PATIENT
  Sex: Male

DRUGS (4)
  1. PEGINTRON [Suspect]
     Indication: HEPATITIS C
     Dosage: REDIPEN
     Dates: start: 20130215, end: 20130719
  2. REBETOL [Suspect]
     Indication: HEPATITIS C
     Dosage: 1200 MG DAILY
     Route: 048
     Dates: start: 20130215, end: 2013
  3. REBETOL [Suspect]
     Dosage: 1000 MG DAILY
     Route: 048
     Dates: start: 2013, end: 20130719
  4. VICTRELIS [Suspect]
     Indication: HEPATITIS C
     Dosage: UNK
     Route: 048
     Dates: start: 20130411, end: 20130719

REACTIONS (18)
  - Platelet aggregation abnormal [Not Recovered/Not Resolved]
  - Pain [Unknown]
  - Insomnia [Unknown]
  - Injection site reaction [Unknown]
  - Headache [Unknown]
  - Fatigue [Unknown]
  - Leukopenia [Unknown]
  - Thrombocytopenia [Unknown]
  - White blood cell count decreased [Unknown]
  - Fatigue [Unknown]
  - Leukopenia [Unknown]
  - White blood cell count decreased [Unknown]
  - Platelet count decreased [Unknown]
  - Thrombocytopenia [Unknown]
  - Fatigue [Unknown]
  - Cough [Unknown]
  - Platelet count decreased [Unknown]
  - Drug ineffective [Unknown]
